FAERS Safety Report 9746698 (Version 2)
Quarter: 2014Q1

REPORT INFORMATION
  Report Type: Report from Study
  Country: US (occurrence: US)
  Receive Date: 20131211
  Receipt Date: 20140320
  Transmission Date: 20141002
  Serious: Yes (Other)
  Sender: FDA-Public Use
  Company Number: US-SA-2013SA127392

PATIENT
  Age: 68 Year
  Sex: Female
  Weight: 53.7 kg

DRUGS (5)
  1. ALEMTUZUMAB [Suspect]
     Indication: CHRONIC LYMPHOCYTIC LEUKAEMIA
     Dosage: DOSE ESCALATION OF 3 MG DAY1, 10 MG DAY 2, 30 MG DAY 3 AND THEN 30 MG TIW (M,W,F)FOR 4 WEEKS
     Route: 058
     Dates: start: 20130731
  2. ALEMTUZUMAB [Suspect]
     Indication: CHRONIC LYMPHOCYTIC LEUKAEMIA
     Dosage: OMIT THE DOSE RAMP OF CYCLE 1, 30 MG TIW (M,W, F), TOTAL DOSE ADMINISTERED 360 MG
     Route: 058
     Dates: start: 20131007, end: 20131101
  3. RITUXIMAB [Suspect]
     Indication: CHRONIC LYMPHOCYTIC LEUKAEMIA
     Dosage: STARTING ON DAY 6 OF CYCLE 1; 12 DOSES PER CYCLE
     Route: 042
     Dates: start: 20130731
  4. RITUXIMAB [Suspect]
     Indication: CHRONIC LYMPHOCYTIC LEUKAEMIA
     Dosage: STARTING ON DAY 1 OF CYCLE 2; 12 DOSES PER CYCLE,TOTAL DOSE ADMINISTERED DURING THIS COURSE 372 MG
     Route: 042
     Dates: start: 20131007, end: 20131101
  5. RITUXIMAB [Suspect]
     Indication: CHRONIC LYMPHOCYTIC LEUKAEMIA
     Dosage: DMINISTERED DURING THIS COURSE 360 MG

REACTIONS (1)
  - Hyponatraemia [Recovering/Resolving]
